FAERS Safety Report 8956411 (Version 1)
Quarter: 2012Q4

REPORT INFORMATION
  Report Type: 
  Country: MX (occurrence: MX)
  Receive Date: 20121210
  Receipt Date: 20121210
  Transmission Date: 20130627
  Serious: Yes (Hospitalization, Other)
  Sender: FDA-Public Use
  Company Number: MX-SANOFI-AVENTIS-2012SA088397

PATIENT
  Age: 40 Year
  Sex: Female
  Weight: 65 kg

DRUGS (2)
  1. LANTUS [Suspect]
     Indication: TYPE 2 DIABETES MELLITUS
     Route: 058
     Dates: start: 201209, end: 20121128
  2. LEVOTHYROXINE [Concomitant]
     Indication: SECONDARY HYPOTHYROIDISM
     Dosage: 1/2
     Route: 048
     Dates: start: 2004

REACTIONS (8)
  - Dehydration [Not Recovered/Not Resolved]
  - Diarrhoea [Not Recovered/Not Resolved]
  - Abdominal pain [Not Recovered/Not Resolved]
  - Abdominal distension [Not Recovered/Not Resolved]
  - Vomiting [Not Recovered/Not Resolved]
  - Food intolerance [Not Recovered/Not Resolved]
  - Pyrexia [Recovered/Resolved]
  - Hyperglycaemia [Not Recovered/Not Resolved]
